FAERS Safety Report 13233362 (Version 4)
Quarter: 2017Q2

REPORT INFORMATION
  Report Type: Spontaneous
  Country: US (occurrence: US)
  Receive Date: 20170215
  Receipt Date: 20170509
  Transmission Date: 20170830
  Serious: No
  Sender: FDA-Public Use
  Company Number: US-ASTRAZENECA-2017SE14034

PATIENT
  Age: 29534 Day
  Sex: Male
  Weight: 93 kg

DRUGS (3)
  1. BYETTA [Suspect]
     Active Substance: EXENATIDE
     Indication: TYPE 2 DIABETES MELLITUS
     Route: 058
  2. BYDUREON [Suspect]
     Active Substance: EXENATIDE
     Indication: TYPE 2 DIABETES MELLITUS
     Route: 058
  3. PLAVIX [Concomitant]
     Active Substance: CLOPIDOGREL BISULFATE

REACTIONS (5)
  - Injection site haemorrhage [Recovered/Resolved]
  - Injection site injury [Recovered/Resolved]
  - Device malfunction [Unknown]
  - Drug ineffective [Unknown]
  - Intentional device misuse [Recovered/Resolved]

NARRATIVE: CASE EVENT DATE: 20170204
